FAERS Safety Report 8906037 (Version 1)
Quarter: 2012Q4

REPORT INFORMATION
  Report Type: 
  Country: AT (occurrence: AT)
  Receive Date: 20121109
  Receipt Date: 20121109
  Transmission Date: 20130627
  Serious: Yes (Other)
  Sender: FDA-Public Use
  Company Number: AT-GLAXOSMITHKLINE-B0843243A

PATIENT
  Age: 37 Year
  Sex: Female
  Weight: 85 kg

DRUGS (1)
  1. REVOLADE [Suspect]
     Indication: IDIOPATHIC THROMBOCYTOPENIC PURPURA
     Route: 048
     Dates: start: 20120725, end: 20120727

REACTIONS (2)
  - Pyrexia [Recovered/Resolved]
  - Nausea [Recovered/Resolved]
